FAERS Safety Report 4602062-5 (Version None)
Quarter: 2005Q1

REPORT INFORMATION
  Report Type: 
  Country: None (occurrence: None)
  Receive Date: 20050214
  Receipt Date: 20040902
  Transmission Date: 20050727
  Serious: Yes (Hospitalization)
  Sender: FDA-Public Use
  Company Number: 8007157

PATIENT
  Age: 20 Year
  Sex: Male

DRUGS (6)
  1. KEPPRA [Suspect]
     Indication: CONVULSION
     Dosage: PO
     Route: 048
     Dates: start: 20040501
  2. TRILEPTAL [Concomitant]
  3. ATIVAN [Concomitant]
  4. PHENERGAN [Concomitant]
  5. TYLENOL (CAPLET) [Concomitant]
  6. DOCUSATE [Concomitant]

REACTIONS (3)
  - ACNE [None]
  - GRAND MAL CONVULSION [None]
  - RASH PSORIAFORM [None]
